FAERS Safety Report 10584037 (Version 1)
Quarter: 2014Q4

REPORT INFORMATION
  Report Type: Spontaneous
  Country: US (occurrence: None)
  Receive Date: 20141113
  Receipt Date: 20141113
  Transmission Date: 20150529
  Serious: Yes (Life-Threatening, Hospitalization)
  Sender: FDA-Public Use
  Company Number: None

PATIENT
  Age: 83 Year
  Sex: Female
  Weight: 86.2 kg

DRUGS (1)
  1. PROFILNINE [Suspect]
     Active Substance: FACTOR IX COMPLEX
     Indication: GASTROINTESTINAL HAEMORRHAGE
     Route: 042

REACTIONS (2)
  - Deep vein thrombosis [None]
  - Infusion site thrombosis [None]

NARRATIVE: CASE EVENT DATE: 20141106
